FAERS Safety Report 12047147 (Version 1)
Quarter: 2016Q1

REPORT INFORMATION
  Report Type: Spontaneous
  Country: FR (occurrence: FR)
  Receive Date: 20160208
  Receipt Date: 20160208
  Transmission Date: 20160526
  Serious: Yes (Hospitalization)
  Sender: FDA-Public Use
  Company Number: FR-PFIZER INC-2016058527

PATIENT
  Age: 67 Year
  Sex: Male

DRUGS (19)
  1. AMIKACIN MYLAN [Suspect]
     Active Substance: AMIKACIN
     Indication: SEPTIC EMBOLUS
     Dosage: UNK
     Route: 042
     Dates: start: 20150617, end: 20150622
  2. FLAGYL [Suspect]
     Active Substance: METRONIDAZOLE\METRONIDAZOLE HYDROCHLORIDE
     Indication: SEPTIC EMBOLUS
     Dosage: UNK
     Route: 042
     Dates: start: 20150623, end: 20150703
  3. UVEDOSE [Concomitant]
     Active Substance: CHOLECALCIFEROL
     Dosage: UNK
  4. EDUCTYL [Concomitant]
     Active Substance: POTASSIUM BITARTRATE\SODIUM BICARBONATE
     Dosage: UNK
  5. LOVENOX [Concomitant]
     Active Substance: ENOXAPARIN SODIUM
     Dosage: UNK
     Dates: start: 20150530, end: 20150624
  6. VANCOMYCINE SANDOZ [Suspect]
     Active Substance: VANCOMYCIN
     Indication: SEPTIC EMBOLUS
     Dosage: UNK
     Route: 042
     Dates: start: 20150607, end: 20150620
  7. LOXEN /00639802/ [Concomitant]
     Active Substance: NICARDIPINE
     Dosage: UNK
     Dates: start: 20150617
  8. VESICARE [Concomitant]
     Active Substance: SOLIFENACIN SUCCINATE
     Dosage: UNK
  9. LOVENOX [Concomitant]
     Active Substance: ENOXAPARIN SODIUM
     Dosage: UNK
     Dates: start: 20150706
  10. INNOHEP [Concomitant]
     Active Substance: TINZAPARIN SODIUM
     Dosage: UNK
     Dates: start: 20150627, end: 20150706
  11. EUPRESSYL /00631802/ [Suspect]
     Active Substance: URAPIDIL HYDROCHLORIDE
     Indication: HYPERTENSION
     Dosage: UNK
     Route: 042
     Dates: start: 20150623, end: 201507
  12. MOTILIUM [Concomitant]
     Active Substance: DOMPERIDONE
     Dosage: UNK
  13. TAZOCILLINE [Suspect]
     Active Substance: PIPERACILLIN SODIUM\TAZOBACTAM SODIUM
     Indication: SEPTIC EMBOLUS
     Dosage: UNK
     Route: 042
     Dates: start: 20150617, end: 20150703
  14. PARACETAMOL [Concomitant]
     Active Substance: ACETAMINOPHEN
     Dosage: UNK
     Dates: start: 20150523
  15. TAMSULOSIN HCL [Concomitant]
     Active Substance: TAMSULOSIN
     Dosage: UNK
  16. INEXIUM /01479302/ [Suspect]
     Active Substance: ESOMEPRAZOLE MAGNESIUM
     Indication: PROPHYLAXIS AGAINST GASTROINTESTINAL ULCER
     Dosage: UNK
     Route: 042
     Dates: start: 20150602, end: 20150625
  17. LASILIX /00032601/ [Suspect]
     Active Substance: FUROSEMIDE
     Indication: FLUID RETENTION
     Dosage: UNK
     Route: 042
     Dates: start: 20150617, end: 20150626
  18. BACLOFEN. [Concomitant]
     Active Substance: BACLOFEN
     Dosage: UNK
  19. MORPHINE [Concomitant]
     Active Substance: MORPHINE
     Dosage: UNK
     Route: 058
     Dates: start: 20150621

REACTIONS (11)
  - Sepsis [None]
  - Inflammation [None]
  - Drug reaction with eosinophilia and systemic symptoms [Recovered/Resolved]
  - Obstruction [None]
  - Clostridial infection [None]
  - Pulmonary embolism [None]
  - Urinary tract infection staphylococcal [None]
  - Haematoma [None]
  - Pneumonia [None]
  - Fistula [None]
  - Bacterial infection [None]

NARRATIVE: CASE EVENT DATE: 20150707
